FAERS Safety Report 4848519-3 (Version None)
Quarter: 2005Q4

REPORT INFORMATION
  Report Type: 
  Country: None (occurrence: None)
  Receive Date: 20051206
  Receipt Date: 20051123
  Transmission Date: 20060501
  Serious: Yes (Hospitalization, Other)
  Sender: FDA-Public Use
  Company Number: HQWYE383703NOV05

PATIENT
  Age: 35 Year
  Sex: Male
  Weight: 93.98 kg

DRUGS (9)
  1. RAPAMUNE [Suspect]
     Indication: PROPHYLAXIS AGAINST TRANSPLANT REJECTION
     Dosage: 3 MG 1X PER 1 DAY, ORAL
     Route: 048
     Dates: start: 20051022
  2. CELLCEPT [Concomitant]
  3. MEDROL [Concomitant]
  4. BACTRIM [Concomitant]
  5. VALCYTE [Concomitant]
  6. PROTONIX [Concomitant]
  7. LOPRESSOR [Concomitant]
  8. NORVASC [Concomitant]
  9. AVANDIA [Concomitant]

REACTIONS (3)
  - DYSPNOEA [None]
  - HYPERGLYCAEMIA [None]
  - LUNG CONSOLIDATION [None]
